FAERS Safety Report 26174321 (Version 1)
Quarter: 2025Q4

REPORT INFORMATION
  Report Type: Spontaneous
  Country: US (occurrence: None)
  Receive Date: 20251218
  Receipt Date: 20251218
  Transmission Date: 20260117
  Serious: Yes (Hospitalization)
  Sender: FDA-CTU
  Company Number: None

PATIENT
  Age: 70 Year
  Sex: Male
  Weight: 83 kg

DRUGS (6)
  1. FLUOROURACIL [Suspect]
     Active Substance: FLUOROURACIL
     Dates: end: 20251203
  2. IRINOTECAN [Suspect]
     Active Substance: IRINOTECAN
     Dates: end: 20251203
  3. LEUCOVORIN CALCIUM [Suspect]
     Active Substance: LEUCOVORIN CALCIUM
     Dates: end: 20251203
  4. OXALIPLATIN [Suspect]
     Active Substance: OXALIPLATIN
     Dates: end: 20251203
  5. PLAVIX [Suspect]
     Active Substance: CLOPIDOGREL BISULFATE
  6. ASPIRIN [Suspect]
     Active Substance: ASPIRIN

REACTIONS (2)
  - Blood urine present [None]
  - Urinary retention [None]

NARRATIVE: CASE EVENT DATE: 20251209
